FAERS Safety Report 5484562-1 (Version None)
Quarter: 2007Q4

REPORT INFORMATION
  Report Type: 
  Country: None (occurrence: None)
  Receive Date: 20071012
  Receipt Date: 20071002
  Transmission Date: 20080405
  Serious: Yes (Other)
  Sender: FDA-Public Use
  Company Number: US-PFIZER INC-2007083376

PATIENT
  Sex: Male
  Weight: 120.2 kg

DRUGS (18)
  1. CHANTIX [Suspect]
     Indication: EX-SMOKER
  2. TRIAMCINOLONE ACETONIDE [Concomitant]
  3. SERETIDE MITE [Concomitant]
  4. POTASSIUM CHLORIDE [Concomitant]
  5. ALLEGRA [Concomitant]
  6. CRESTOR [Concomitant]
  7. PROVIGIL [Concomitant]
  8. ACTOS [Concomitant]
  9. FUROSEMIDE [Concomitant]
  10. ALTACE [Concomitant]
  11. GLYBURIDE [Concomitant]
  12. METFORMIN HCL [Concomitant]
  13. TOPROL-XL [Concomitant]
  14. ACETYLSALICYLIC ACID [Concomitant]
  15. ASCORBIC ACID [Concomitant]
  16. CENTRUM SILVER [Concomitant]
  17. CALCIUM [Concomitant]
  18. INSULIN GLARGINE [Concomitant]

REACTIONS (8)
  - ANXIETY [None]
  - DEPRESSION [None]
  - DYSPNOEA [None]
  - INSOMNIA [None]
  - NAUSEA [None]
  - PANIC ATTACK [None]
  - RESTLESSNESS [None]
  - TREMOR [None]
